FAERS Safety Report 20175910 (Version 2)
Quarter: 2022Q1

REPORT INFORMATION
  Report Type: Spontaneous
  Country: US (occurrence: US)
  Receive Date: 20211213
  Receipt Date: 20220113
  Transmission Date: 20220423
  Serious: No
  Sender: FDA-Public Use
  Company Number: US-PFIZER INC-202101757320

PATIENT
  Age: 52 Year
  Sex: Male
  Weight: 137.89 kg

DRUGS (2)
  1. PREGABALIN [Suspect]
     Active Substance: PREGABALIN
     Indication: Polyneuropathy
     Dosage: UNK
     Dates: end: 2020
  2. BUPRENORPHINE [Concomitant]
     Active Substance: BUPRENORPHINE
     Indication: Neuralgia
     Dosage: UNK, 3X/DAY (I TAKE ONE THREE TIMES A DAY)

REACTIONS (2)
  - Drug ineffective [Unknown]
  - Hypoacusis [Unknown]
